FAERS Safety Report 22655733 (Version 1)
Quarter: 2023Q2

REPORT INFORMATION
  Report Type: Spontaneous
  Country: US (occurrence: None)
  Receive Date: 20230629
  Receipt Date: 20230629
  Transmission Date: 20230721
  Serious: Yes (Death)
  Sender: FDA-Public Use
  Company Number: None

PATIENT
  Age: 62 Year
  Sex: Female

DRUGS (1)
  1. VENOFER [Suspect]
     Active Substance: IRON SUCROSE
     Indication: Rectal cancer
     Dosage: 300MG EVERY WEEK INTRAVENOUSLY
     Route: 042
     Dates: start: 202302

REACTIONS (1)
  - Death [None]

NARRATIVE: CASE EVENT DATE: 20230626
